FAERS Safety Report 8313909-3 (Version None)
Quarter: 2012Q2

REPORT INFORMATION
  Report Type: 
  Country: None (occurrence: None)
  Receive Date: 20120426
  Receipt Date: 20120426
  Transmission Date: 20120825
  Serious: Yes (Other)
  Sender: FDA-Public Use
  Company Number: None

PATIENT
  Age: 34 Year
  Sex: Female
  Weight: 71.214 kg

DRUGS (2)
  1. PROMETRIUM [Suspect]
     Indication: SHORTENED CERVIX
     Dosage: 100.0 MG
     Route: 067
  2. PROMETRIUM [Suspect]
     Indication: SHORTENED CERVIX
     Dosage: 100.0 MG
     Route: 067

REACTIONS (8)
  - ANXIETY [None]
  - ALTERED STATE OF CONSCIOUSNESS [None]
  - FALL [None]
  - LETHARGY [None]
  - PARAESTHESIA [None]
  - VIBRATORY SENSE INCREASED [None]
  - DIZZINESS [None]
  - PANIC REACTION [None]
